FAERS Safety Report 6135105-0 (Version None)
Quarter: 2009Q1

REPORT INFORMATION
  Report Type: 
  Country: None (occurrence: None)
  Receive Date: 20090325
  Receipt Date: 20090308
  Transmission Date: 20090719
  Serious: Yes (Other)
  Sender: FDA-Public Use
  Company Number: 2007S1006319

PATIENT
  Age: 70 Year
  Sex: Female
  Weight: 62.1428 kg

DRUGS (10)
  1. PHOSPHOSODA FLAVOR NOT SPECIFIED [Suspect]
     Indication: COLONOSCOPY
     Dosage: 90 ML; TOTAL; PO
     Route: 048
     Dates: start: 20061018, end: 20061018
  2. CALCIUM [Concomitant]
  3. ASPIRIN [Concomitant]
  4. BENICAR HCT [Concomitant]
  5. DILTIAZEM [Concomitant]
  6. PRILOSEC [Concomitant]
  7. MULTI-VITAMIN [Concomitant]
  8. LOVAZA [Concomitant]
  9. COENZYME Q10 [Concomitant]
  10. DULCOLAX [Concomitant]

REACTIONS (6)
  - DIALYSIS [None]
  - DRUG TOXICITY [None]
  - ECONOMIC PROBLEM [None]
  - HYPERPHOSPHATAEMIA [None]
  - INJURY [None]
  - RENAL FAILURE CHRONIC [None]
